FAERS Safety Report 20792495 (Version 1)
Quarter: 2022Q2

REPORT INFORMATION
  Report Type: Spontaneous
  Country: US (occurrence: US)
  Receive Date: 20220506
  Receipt Date: 20220506
  Transmission Date: 20220720
  Serious: Yes (Other)
  Sender: FDA-Public Use
  Company Number: US-AMGEN-USASP2022072791

PATIENT
  Sex: Female

DRUGS (1)
  1. REPATHA [Suspect]
     Active Substance: EVOLOCUMAB
     Indication: Blood cholesterol abnormal
     Dosage: 140 MILLIGRAM, UNK
     Route: 065

REACTIONS (10)
  - Hypothyroidism [Unknown]
  - Muscle tightness [Unknown]
  - Pyrexia [Unknown]
  - Muscular weakness [Unknown]
  - Intentional product misuse [Unknown]
  - Adverse drug reaction [Unknown]
  - Muscle spasms [Unknown]
  - Myalgia [Unknown]
  - Injection site pain [Unknown]
  - Back pain [Unknown]
